FAERS Safety Report 23285077 (Version 1)
Quarter: 2023Q4

REPORT INFORMATION
  Report Type: Spontaneous
  Country: PL (occurrence: PL)
  Receive Date: 20231211
  Receipt Date: 20231211
  Transmission Date: 20240109
  Serious: Yes (Hospitalization, Other)
  Sender: FDA-Public Use
  Company Number: PL-BAYER-2023A177316

PATIENT
  Age: 40 Year
  Sex: Female
  Weight: 76 kg

DRUGS (24)
  1. VENTAVIS [Suspect]
     Active Substance: ILOPROST
     Indication: Palpitations
     Dosage: UNK
     Route: 055
     Dates: start: 20221117, end: 20230221
  2. VENTAVIS [Suspect]
     Active Substance: ILOPROST
     Indication: Headache
     Route: 055
  3. VENTAVIS [Suspect]
     Active Substance: ILOPROST
     Indication: Erythema
     Route: 055
  4. SILDENAFIL [Concomitant]
     Active Substance: SILDENAFIL
     Dosage: 60 MG
     Dates: start: 20190904
  5. MACITENTAN [Concomitant]
     Active Substance: MACITENTAN
     Dosage: 10 MG
     Dates: start: 20230224
  6. BIOTRAXON [Concomitant]
     Indication: Antibiotic therapy
     Dosage: UNK
     Route: 042
     Dates: start: 20230905, end: 20230911
  7. FOLIC ACID [Concomitant]
     Active Substance: FOLIC ACID
     Indication: Hypovitaminosis
     Dosage: UNK
     Route: 048
     Dates: start: 202306
  8. METHOTREXATE [Concomitant]
     Active Substance: METHOTREXATE
     Indication: Immunosuppressant drug therapy
     Dosage: UNK
     Route: 048
     Dates: start: 202306
  9. ENOXAPARIN SODIUM [Concomitant]
     Active Substance: ENOXAPARIN SODIUM
     Indication: Anticoagulant therapy
     Dosage: UNK
     Route: 058
     Dates: start: 202303
  10. SPIRONOLACTONE [Concomitant]
     Active Substance: SPIRONOLACTONE
     Indication: Diuretic therapy
     Dosage: UNK
     Route: 048
     Dates: start: 202303, end: 20230330
  11. TORSEMIDE [Concomitant]
     Active Substance: TORSEMIDE
     Indication: Diuretic therapy
     Dosage: UNK
     Route: 048
     Dates: start: 202303, end: 20230330
  12. PRIVIGEN [Concomitant]
     Active Substance: HUMAN IMMUNOGLOBULIN G
     Indication: Immunoglobulins
     Dosage: UNK
     Route: 042
     Dates: start: 20230316, end: 20230320
  13. SOLU-MEDROL [Concomitant]
     Active Substance: METHYLPREDNISOLONE SODIUM SUCCINATE
     Indication: Immunosuppression
     Dosage: UNK
     Route: 042
     Dates: start: 202303, end: 202303
  14. POTASSIUM CHLORIDE [Concomitant]
     Active Substance: POTASSIUM CHLORIDE
     Indication: Hypokalaemia
     Dosage: UNK
     Route: 048
     Dates: start: 20210818
  15. ESOMEPRAZOLE MAGNESIUM [Concomitant]
     Active Substance: ESOMEPRAZOLE\ESOMEPRAZOLE MAGNESIUM\ESOMEPRAZOLE MAGNESIUM DIHYDRATE
     Indication: Gastrooesophageal reflux disease
     Dosage: UNK
     Route: 048
     Dates: start: 20210215
  16. DEVIKAP [Concomitant]
     Indication: Vitamin supplementation
     Dosage: UNK
     Route: 048
  17. CALCIUM CARBONATE [Concomitant]
     Active Substance: CALCIUM CARBONATE
     Indication: Calcium deficiency
     Dosage: UNK
     Route: 048
  18. FEROPLEX [Concomitant]
     Indication: Iron deficiency anaemia
     Dosage: UNK
     Route: 048
     Dates: start: 202302
  19. FERROUS SULFATE [Concomitant]
     Active Substance: FERROUS SULFATE
     Indication: Iron deficiency anaemia
     Dosage: UNK
     Route: 048
     Dates: start: 202302
  20. ELIQUIS [Concomitant]
     Active Substance: APIXABAN
     Indication: Anticoagulant therapy
     Dosage: UNK
     Route: 048
     Dates: start: 202311
  21. ROSUVASTATIN [Concomitant]
     Active Substance: ROSUVASTATIN
     Indication: Blood cholesterol decreased
     Dosage: UNK
     Route: 048
  22. METHYLPREDNISOLONE [Concomitant]
     Active Substance: METHYLPREDNISOLONE
     Indication: Dermatitis
     Dosage: UNK
     Route: 048
  23. METHYLPREDNISOLONE [Concomitant]
     Active Substance: METHYLPREDNISOLONE
     Indication: Skin lesion
  24. HYDROXYCHLOROQUINE [Concomitant]
     Active Substance: HYDROXYCHLOROQUINE
     Indication: Eczema
     Dosage: UNK
     Route: 048

REACTIONS (3)
  - Pulmonary hypertension [Unknown]
  - Upper respiratory tract infection [Unknown]
  - Mixed connective tissue disease [Unknown]
